FAERS Safety Report 10182889 (Version 2)
Quarter: 2014Q2

REPORT INFORMATION
  Report Type: Spontaneous
  Country: US (occurrence: US)
  Receive Date: 20140520
  Receipt Date: 20140520
  Transmission Date: 20141212
  Serious: No
  Sender: FDA-Public Use
  Company Number: US-PFIZER INC-2014098673

PATIENT
  Age: 79 Year
  Sex: Female
  Weight: 63.95 kg

DRUGS (3)
  1. DILANTIN-125 [Suspect]
     Dosage: 200 MG, DAILY
  2. DILANTIN-125 [Suspect]
     Dosage: UNK
  3. CRESTOR [Concomitant]
     Indication: BLOOD CHOLESTEROL INCREASED
     Dosage: 40 MG, DAILY

REACTIONS (3)
  - Abdominal discomfort [Unknown]
  - Product taste abnormal [Unknown]
  - Product odour abnormal [Unknown]
